FAERS Safety Report 9139474 (Version 3)
Quarter: 2013Q2

REPORT INFORMATION
  Report Type: Spontaneous
  Country: AU (occurrence: AU)
  Receive Date: 20130305
  Receipt Date: 20130426
  Transmission Date: 20140414
  Serious: Yes (Other)
  Sender: FDA-Public Use
  Company Number: PHHY2013AU020416

PATIENT
  Sex: Male
  Weight: 91.6 kg

DRUGS (15)
  1. TEGRETOL CR [Suspect]
     Dosage: 1 DF, BID
  2. DITROPAN [Interacting]
     Dosage: 0.5 DF, TID
     Dates: start: 20121016
  3. VALPRO [Suspect]
     Dosage: 2 DF, BID
  4. ACTONEL COMBI D [Concomitant]
     Dosage: 1 DF, WEEKLY (FRIDAY)
     Dates: start: 20130328
  5. AMLODIPINE [Concomitant]
     Dosage: 1 DF, AT MORNING
  6. DUODART [Concomitant]
     Dosage: 1 DF, AT NIGHT
     Dates: start: 20121016
  7. HALOPERIDOL [Concomitant]
     Dosage: 1 DF, TID
  8. OSTEVIT-D [Concomitant]
     Dosage: 3 DF, AT MORNING
  9. OSTEVIT-D [Concomitant]
     Dosage: UNK UKN, UNK
     Dates: start: 20120607
  10. DIAZEPAM [Concomitant]
     Dosage: 1 DF, AT NIGHT
  11. METOCLOPRAMIDE [Concomitant]
     Dosage: 1 DF, QID
  12. METOCLOPRAMIDE [Concomitant]
     Dosage: 1 DF, QID
  13. MOVICOL [Concomitant]
     Dosage: 1 DF, DAILY
  14. MYLANTA P [Concomitant]
     Dosage: 15 ML, QID
  15. PARALGIN//PARACETAMOL [Concomitant]
     Dosage: UNK UKN, UNK

REACTIONS (23)
  - Tibia fracture [Unknown]
  - Grand mal convulsion [Unknown]
  - Abnormal behaviour [Unknown]
  - Aggression [Unknown]
  - Antisocial behaviour [Unknown]
  - Frustration [Unknown]
  - Restlessness [Unknown]
  - Faecal incontinence [Unknown]
  - Mental impairment [Unknown]
  - Coordination abnormal [Unknown]
  - Balance disorder [Unknown]
  - Pain in extremity [Unknown]
  - Back pain [Unknown]
  - Lip dry [Unknown]
  - Terminal dribbling [Unknown]
  - Urinary hesitation [Unknown]
  - Sensory disturbance [Unknown]
  - Erythema [Unknown]
  - Arthralgia [Unknown]
  - Dysarthria [Unknown]
  - Oedema [Unknown]
  - Dyskinesia [Unknown]
  - Drug interaction [Unknown]
